FAERS Safety Report 9174022 (Version 2)
Quarter: 2013Q2

REPORT INFORMATION
  Report Type: Spontaneous
  Country: IE (occurrence: None)
  Receive Date: 20130314
  Receipt Date: 20130409
  Transmission Date: 20140414
  Serious: Yes (Hospitalization)
  Sender: FDA-Public Use
  Company Number: MPS1-1000952

PATIENT
  Age: 35 Year
  Sex: Male
  Weight: 45.4 kg

DRUGS (2)
  1. ALDURAZYME [Suspect]
     Indication: MUCOPOLYSACCHARIDOSIS I
     Route: 042
     Dates: start: 20030423
  2. FLECAINIDE [Concomitant]

REACTIONS (7)
  - Supraventricular tachycardia [None]
  - Hypercapnia [None]
  - Sleep apnoea syndrome [None]
  - Bradycardia [None]
  - Mitral valve stenosis [None]
  - Mitral valve incompetence [None]
  - Aortic valve sclerosis [None]
